FAERS Safety Report 6538195-6 (Version None)
Quarter: 2010Q1

REPORT INFORMATION
  Report Type: 
  Country: None (occurrence: None)
  Receive Date: 20100114
  Receipt Date: 20100105
  Transmission Date: 20100710
  Serious: Yes (Death, Other)
  Sender: FDA-Public Use
  Company Number: CA-ABBOTT-09P-028-0608773-00

PATIENT
  Sex: Male
  Weight: 108.05 kg

DRUGS (1)
  1. LUPRON DEPOT [Suspect]
     Indication: PROSTATE CANCER
     Dates: start: 20071111, end: 20091111

REACTIONS (3)
  - BONE CANCER METASTATIC [None]
  - FATIGUE [None]
  - PROSTATE CANCER METASTATIC [None]
